FAERS Safety Report 7443734-7 (Version None)
Quarter: 2011Q2

REPORT INFORMATION
  Report Type: 
  Country: None (occurrence: None)
  Receive Date: 20110428
  Receipt Date: 20100503
  Transmission Date: 20111010
  Serious: No
  Sender: FDA-Public Use
  Company Number: US-BAUSCH-2010BL002319

PATIENT
  Age: 54 Year
  Sex: Female

DRUGS (3)
  1. ALREX [Suspect]
     Indication: DRY EYE
     Route: 047
     Dates: start: 20100329, end: 20100402
  2. ALREX [Suspect]
     Indication: OFF LABEL USE
     Route: 047
     Dates: start: 20100329, end: 20100402
  3. ALREX [Suspect]
     Indication: VISION BLURRED
     Route: 047
     Dates: start: 20100329, end: 20100402

REACTIONS (8)
  - VISUAL IMPAIRMENT [None]
  - DRY EYE [None]
  - VISION BLURRED [None]
  - CONDITION AGGRAVATED [None]
  - DIPLOPIA [None]
  - EYE IRRITATION [None]
  - PHOTOPHOBIA [None]
  - HALO VISION [None]
